FAERS Safety Report 22103317 (Version 2)
Quarter: 2023Q1

REPORT INFORMATION
  Report Type: Spontaneous
  Country: US (occurrence: US)
  Receive Date: 20230316
  Receipt Date: 20230324
  Transmission Date: 20230417
  Serious: No
  Sender: FDA-Public Use
  Company Number: US-LUPIN PHARMACEUTICALS INC.-2023-02004

PATIENT

DRUGS (2)
  1. ALBUTEROL SULFATE [Suspect]
     Active Substance: ALBUTEROL SULFATE
     Indication: Asthma
     Dosage: UNK, 1 PUFF BY MOUTH EVERY 4-6 HOURS
  2. ALBUTEROL SULFATE [Suspect]
     Active Substance: ALBUTEROL SULFATE
     Dosage: UNK, 1 PUFF BY MOUTH EVERY 4-6 HOURS
     Dates: start: 20230306

REACTIONS (5)
  - Dyspnoea [Unknown]
  - Wrong technique in product usage process [Unknown]
  - Product preparation error [Unknown]
  - Device delivery system issue [Unknown]
  - Drug dose omission by device [Unknown]
